FAERS Safety Report 7626214-5 (Version None)
Quarter: 2011Q3

REPORT INFORMATION
  Report Type: 
  Country: None (occurrence: None)
  Receive Date: 20110721
  Receipt Date: 20110708
  Transmission Date: 20111222
  Serious: Yes (Other)
  Sender: FDA-Public Use
  Company Number: PHHY2011FR53588

PATIENT
  Age: 74 Year
  Sex: Male

DRUGS (2)
  1. MICARDIS [Concomitant]
     Dosage: 80 MG, UNK
  2. RASILEZ [Suspect]
     Dosage: 300 MG, UNK
     Route: 048
     Dates: start: 20110101

REACTIONS (1)
  - BONE MARROW FAILURE [None]
